FAERS Safety Report 6385608-9 (Version None)
Quarter: 2009Q4

REPORT INFORMATION
  Report Type: 
  Country: None (occurrence: None)
  Receive Date: 20091002
  Receipt Date: 20081014
  Transmission Date: 20100525
  Serious: No
  Sender: FDA-Public Use
  Company Number: US-ASTRAZENECA-2008UW22742

PATIENT
  Age: 69 Year
  Sex: Female

DRUGS (9)
  1. ARIMIDEX [Suspect]
     Route: 048
     Dates: start: 20040101
  2. DIGOXIN [Concomitant]
  3. SYNTHROID [Concomitant]
  4. ZOCOR [Concomitant]
  5. K-DUR [Concomitant]
  6. NEURONTIN [Concomitant]
  7. CELEXA [Concomitant]
  8. TOPROL-XL [Concomitant]
     Route: 048
  9. AREDS [Concomitant]
     Route: 048

REACTIONS (1)
  - SPINAL COLUMN STENOSIS [None]
